FAERS Safety Report 16049357 (Version 1)
Quarter: 2019Q1

REPORT INFORMATION
  Report Type: Other
  Country: ES (occurrence: ES)
  Receive Date: 20190307
  Receipt Date: 20190307
  Transmission Date: 20190418
  Serious: Yes (Hospitalization)
  Sender: FDA-Public Use
  Company Number: ES-SERVIER-S19001849

PATIENT

DRUGS (11)
  1. ONCASPAR [Suspect]
     Active Substance: PEGASPARGASE
     Indication: ACUTE LYMPHOCYTIC LEUKAEMIA
     Dosage: 658.3 IU
     Route: 030
     Dates: start: 20180122, end: 20180122
  2. CICLOFOSFAMIDA [Suspect]
     Active Substance: CYCLOPHOSPHAMIDE
     Indication: ACUTE LYMPHOCYTIC LEUKAEMIA
     Dosage: 329.1 MG
     Route: 042
     Dates: start: 20180122, end: 20180122
  3. TN UNSPECIFIED [Concomitant]
     Active Substance: TROLNITRATE
     Indication: PROPHYLAXIS
     Dosage: 395.1 MG
     Route: 042
     Dates: start: 20180122, end: 20180122
  4. TN UNSPECIFIED [Concomitant]
     Active Substance: TROLNITRATE
     Indication: PROPHYLAXIS AGAINST GASTROINTESTINAL ULCER
     Dosage: 20 MG
     Route: 048
     Dates: start: 20180108, end: 20180129
  5. CITARABINA [Suspect]
     Active Substance: CYTARABINE
     Indication: ACUTE LYMPHOCYTIC LEUKAEMIA
     Dosage: 49.4 MG
     Route: 042
     Dates: start: 20180124, end: 20180127
  6. VINCRISTINA [Suspect]
     Active Substance: VINCRISTINE
     Indication: ACUTE LYMPHOCYTIC LEUKAEMIA
     Dosage: 0.99 MG
     Route: 042
     Dates: start: 20180108, end: 20180115
  7. ZOVIRAX [Concomitant]
     Active Substance: ACYCLOVIR
     Indication: OPPORTUNISTIC INFECTION PROPHYLAXIS
     Dosage: 2 ML
     Route: 048
     Dates: start: 20170627
  8. DEXAMETASONA [Suspect]
     Active Substance: DEXAMETHASONE
     Indication: ACUTE LYMPHOCYTIC LEUKAEMIA
     Dosage: 4 MG
     Route: 048
     Dates: start: 20180108, end: 20180129
  9. TIOGUANINA [Suspect]
     Active Substance: THIOGUANINE ANHYDROUS
     Indication: ACUTE LYMPHOCYTIC LEUKAEMIA
     Dosage: 40 MG
     Route: 048
     Dates: start: 20180122, end: 20180201
  10. SEPTRIN PAEDIATRIC [Concomitant]
     Active Substance: SULFAMETHOXAZOLE\TRIMETHOPRIM
     Indication: OPPORTUNISTIC INFECTION PROPHYLAXIS
     Dosage: 5 ML
     Route: 048
     Dates: start: 20170627
  11. DOXORUBICIN [Suspect]
     Active Substance: DOXORUBICIN
     Indication: ACUTE LYMPHOCYTIC LEUKAEMIA
     Dosage: 19.7 MG
     Route: 042
     Dates: start: 20180108, end: 20180115

REACTIONS (2)
  - Corona virus infection [Recovered/Resolved]
  - Pancytopenia [Recovered/Resolved]

NARRATIVE: CASE EVENT DATE: 20180127
